FAERS Safety Report 7213046-5 (Version None)
Quarter: 2011Q1

REPORT INFORMATION
  Report Type: 
  Country: None (occurrence: None)
  Receive Date: 20110106
  Receipt Date: 20101228
  Transmission Date: 20110831
  Serious: Yes (Life-Threatening, Hospitalization)
  Sender: FDA-Public Use
  Company Number: B0691131A

PATIENT
  Sex: Female

DRUGS (6)
  1. SPIRONOLACTONE [Concomitant]
     Dosage: 50MG PER DAY
     Route: 048
  2. ARIXTRA [Suspect]
     Dosage: 2.5MG PER DAY
     Route: 065
     Dates: start: 20100317, end: 20100324
  3. LODOZ [Concomitant]
     Dosage: 1UNIT PER DAY
     Route: 048
  4. ALFATIL [Concomitant]
     Dosage: 250MG PER DAY
     Route: 048
  5. HYDERGINE [Concomitant]
     Dosage: 4.5MG PER DAY
     Route: 048
  6. COAPROVEL [Concomitant]
     Dosage: 1UNIT PER DAY
     Route: 048

REACTIONS (3)
  - ANAEMIA [None]
  - MELAENA [None]
  - GASTRIC ULCER HAEMORRHAGE [None]
